FAERS Safety Report 4687121-3 (Version None)
Quarter: 2005Q2

REPORT INFORMATION
  Report Type: 
  Country: None (occurrence: None)
  Receive Date: 20050607
  Receipt Date: 20050523
  Transmission Date: 20051028
  Serious: Yes (Other)
  Sender: FDA-Public Use
  Company Number: USA021022067

PATIENT
  Age: 74 Year
  Sex: Female
  Weight: 73 kg

DRUGS (16)
  1. HUMALOG [Suspect]
     Indication: DIABETES MELLITUS NON-INSULIN-DEPENDENT
  2. HUMULIN 70/30 [Suspect]
     Indication: DIABETES MELLITUS NON-INSULIN-DEPENDENT
     Dosage: 15 U DAY
     Dates: start: 19990101
  3. IODINE [Concomitant]
  4. OXYGEN [Concomitant]
  5. METFORMIN HCL [Concomitant]
  6. GLIPIZIDE [Concomitant]
  7. VENTOLIN (SALBUTAMOL SULFATE) [Concomitant]
  8. NORVASC [Concomitant]
  9. NEURONTIN (GABAPENTIN PFIZER) [Concomitant]
  10. PREDNISONE [Concomitant]
  11. SYNTHROID [Concomitant]
  12. NEXIUM [Concomitant]
  13. ALBUTEROL [Concomitant]
  14. IPRATROPIUM BROMIDE [Concomitant]
  15. FLOVENT [Concomitant]
  16. TRANXENE [Concomitant]

REACTIONS (15)
  - BLOOD GLUCOSE FLUCTUATION [None]
  - DIABETES MELLITUS INADEQUATE CONTROL [None]
  - DIABETES MELLITUS INSULIN-DEPENDENT [None]
  - DRUG INEFFECTIVE [None]
  - DYSPHASIA [None]
  - HYPERTENSION [None]
  - ILL-DEFINED DISORDER [None]
  - LUNG INFECTION [None]
  - LUNG NEOPLASM MALIGNANT [None]
  - MEDICAL DEVICE COMPLICATION [None]
  - NAUSEA [None]
  - SPLENIC LESION [None]
  - STRESS [None]
  - VISUAL ACUITY REDUCED [None]
  - WEIGHT INCREASED [None]
